FAERS Safety Report 15196874 (Version 2)
Quarter: 2018Q3

REPORT INFORMATION
  Report Type: Spontaneous
  Country: CN (occurrence: CN)
  Receive Date: 20180725
  Receipt Date: 20180803
  Transmission Date: 20181010
  Serious: Yes (Death, Other)
  Sender: FDA-Public Use
  Company Number: CN-ALEXION-A201809569

PATIENT
  Sex: Female

DRUGS (3)
  1. SOLIRIS [Suspect]
     Active Substance: ECULIZUMAB
     Indication: OFF LABEL USE
  2. SOLIRIS [Suspect]
     Active Substance: ECULIZUMAB
     Indication: ATYPICAL HAEMOLYTIC URAEMIC SYNDROME
     Dosage: UNK
     Route: 065
     Dates: start: 20180708, end: 20180715
  3. SOLIRIS [Suspect]
     Active Substance: ECULIZUMAB
     Indication: BONE MARROW TRANSPLANT

REACTIONS (2)
  - Off label use [Unknown]
  - Hepatic failure [Fatal]
